FAERS Safety Report 17094915 (Version 2)
Quarter: 2020Q2

REPORT INFORMATION
  Report Type: Spontaneous
  Country: FR (occurrence: FR)
  Receive Date: 20191130
  Receipt Date: 20200514
  Transmission Date: 20200713
  Serious: Yes (Other)
  Sender: FDA-Public Use
  Company Number: FR-ACCORD-162825

PATIENT
  Age: 60 Year
  Sex: Female
  Weight: 104 kg

DRUGS (16)
  1. SERTRALINE [Concomitant]
     Active Substance: SERTRALINE HYDROCHLORIDE
  2. OLANZAPINE. [Concomitant]
     Active Substance: OLANZAPINE
  3. RANITIDINE. [Suspect]
     Active Substance: RANITIDINE
     Indication: PREMEDICATION
     Route: 042
     Dates: start: 20190709, end: 20191104
  4. SERESTA [Concomitant]
     Active Substance: OXAZEPAM
  5. CARBAMAZEPINE. [Concomitant]
     Active Substance: CARBAMAZEPINE
  6. UVEDOSE [Concomitant]
     Active Substance: CHOLECALCIFEROL
  7. PACLITAXEL/PACLITAXEL LIPOSOME [Suspect]
     Active Substance: PACLITAXEL
     Indication: BREAST CANCER METASTATIC
     Dosage: 6 MG/ML
     Route: 042
     Dates: start: 20190709, end: 20191104
  8. PRAVASTATIN. [Concomitant]
     Active Substance: PRAVASTATIN
  9. ONDANSETRON [Suspect]
     Active Substance: ONDANSETRON
     Indication: PREMEDICATION
     Route: 041
     Dates: start: 20190709, end: 20191104
  10. SOLU-MEDROL [Suspect]
     Active Substance: METHYLPREDNISOLONE SODIUM SUCCINATE
     Indication: PREMEDICATION
     Dosage: 120 MG/2 ML, LYOPHILISATE AND SOLUTION FOR PARENTERAL USE
     Route: 040
     Dates: start: 20190709, end: 20191104
  11. FUROSEMIDE. [Concomitant]
     Active Substance: FUROSEMIDE
  12. SPIRONOLACTONE. [Concomitant]
     Active Substance: SPIRONOLACTONE
  13. POLARAMINE [Suspect]
     Active Substance: DEXCHLORPHENIRAMINE MALEATE
     Indication: PREMEDICATION
     Dosage: 5 MG/1 ML, SOLUTION INJECTABLE
     Route: 042
     Dates: start: 20190709, end: 20191104
  14. LOXAPINE. [Concomitant]
     Active Substance: LOXAPINE
  15. CODEINE PHOSPHATE/PARACETAMOL [Concomitant]
     Active Substance: ACETAMINOPHEN\CODEINE PHOSPHATE
  16. DOLIPRANE [Concomitant]
     Active Substance: ACETAMINOPHEN

REACTIONS (1)
  - Hepatitis [Recovered/Resolved]

NARRATIVE: CASE EVENT DATE: 20190914
